FAERS Safety Report 16338697 (Version 1)
Quarter: 2019Q2

REPORT INFORMATION
  Report Type: Not Available
  Country: US (occurrence: US)
  Receive Date: 20190521
  Receipt Date: 20190521
  Transmission Date: 20190711
  Serious: No
  Sender: FDA-Public Use
  Company Number: US-NEUROCRINE BIOSCIENCES INC.-2019NBI01202

PATIENT
  Age: 56 Year
  Sex: Male

DRUGS (4)
  1. LORAZEPAM. [Concomitant]
     Active Substance: LORAZEPAM
     Dosage: STARTED AROUND 6 MONTHS AGO
     Dates: start: 2018
  2. INGREZZA [Suspect]
     Active Substance: VALBENAZINE
     Indication: TARDIVE DYSKINESIA
     Dates: start: 20190410
  3. INVEGA TRINZA [Concomitant]
     Active Substance: PALIPERIDONE PALMITATE
     Dosage: HAS BEEN ON FOR A LONG TIME AROUND 3 YEARS
  4. LITHIUM. [Concomitant]
     Active Substance: LITHIUM
     Dosage: HAS BEEN ON FOR A LONG TIME, AROUND 3 YEARS

REACTIONS (1)
  - Tardive dyskinesia [Not Recovered/Not Resolved]

NARRATIVE: CASE EVENT DATE: 20190417
